FAERS Safety Report 9236300 (Version 1)
Quarter: 2013Q2

REPORT INFORMATION
  Report Type: Spontaneous
  Country: US (occurrence: US)
  Receive Date: 20130417
  Receipt Date: 20130417
  Transmission Date: 20140414
  Serious: Yes (Other)
  Sender: FDA-Public Use
  Company Number: US-PFIZER INC-2013117035

PATIENT
  Age: 74 Year
  Sex: Female

DRUGS (8)
  1. ESTRING [Suspect]
     Indication: MICTURITION DISORDER
     Dosage: UNK
     Route: 067
     Dates: end: 201304
  2. TARKA [Concomitant]
     Dosage: UNK
  3. ATENOLOL [Concomitant]
     Dosage: UNK
  4. CELEBREX [Concomitant]
     Dosage: UNK
  5. FAMOTIDINE [Concomitant]
     Dosage: UNK
  6. HYDROCHLOROTHIAZIDE [Concomitant]
     Dosage: UNK
  7. VITAMIN D [Concomitant]
     Dosage: UNK
  8. VITAMIN E [Concomitant]
     Dosage: UNK

REACTIONS (2)
  - Bronchitis [Recovered/Resolved]
  - Fungal infection [Recovered/Resolved]
